FAERS Safety Report 5762670-5 (Version None)
Quarter: 2008Q2

REPORT INFORMATION
  Report Type: 
  Country: None (occurrence: None)
  Receive Date: 20080609
  Receipt Date: 20080529
  Transmission Date: 20081010
  Serious: Yes (Other)
  Sender: FDA-Public Use
  Company Number: CA-JNJFOC-20080600088

PATIENT
  Sex: Female
  Weight: 63 kg

DRUGS (2)
  1. REMICADE [Suspect]
     Indication: RHEUMATOID ARTHRITIS
     Dosage: TOTAL NUMBER OF DOSES RECEIVED = 26.
  2. TYLENOL [Concomitant]
     Indication: PREMEDICATION

REACTIONS (1)
  - DEMENTIA ALZHEIMER'S TYPE [None]
